FAERS Safety Report 7580688-7 (Version None)
Quarter: 2011Q2

REPORT INFORMATION
  Report Type: 
  Country: None (occurrence: None)
  Receive Date: 20110620
  Receipt Date: 20110608
  Transmission Date: 20111010
  Serious: Yes (Hospitalization)
  Sender: FDA-Public Use
  Company Number: 2011028862

PATIENT
  Sex: Male
  Weight: 79.3795 kg

DRUGS (2)
  1. PRIVIGEN [Suspect]
     Indication: IDIOPATHIC THROMBOCYTOPENIC PURPURA
     Dosage: (INFUSED 40GM INTRAVENOUS PIGGYBACK (ONE DOSE) INTRAVENOUS (NOT OTHERWISE SPECIFIED))
     Route: 042
     Dates: start: 20110525
  2. PRIVIGEN [Suspect]

REACTIONS (1)
  - HEPATITIS FULMINANT [None]
